FAERS Safety Report 21792299 (Version 1)
Quarter: 2022Q4

REPORT INFORMATION
  Report Type: Spontaneous
  Country: FR (occurrence: FR)
  Receive Date: 20221229
  Receipt Date: 20221229
  Transmission Date: 20230113
  Serious: Yes (Other)
  Sender: FDA-Public Use
  Company Number: None

PATIENT
  Age: 57 Year
  Sex: Female

DRUGS (3)
  1. OXCARBAZEPINE [Suspect]
     Active Substance: OXCARBAZEPINE
     Indication: Neuropathy peripheral
     Dosage: UNK
     Route: 048
     Dates: start: 2018
  2. AUBAGIO [Suspect]
     Active Substance: TERIFLUNOMIDE
     Indication: Multiple sclerosis
     Dosage: 14 MG, QD
     Route: 048
     Dates: start: 2015
  3. PINAVERIUM [PINAVERIUM BROMIDE] [Concomitant]
     Indication: Gastrointestinal disorder therapy
     Dosage: 200 MG, Q12H
     Route: 048

REACTIONS (2)
  - Hypogammaglobulinaemia [Not Recovered/Not Resolved]
  - Condition aggravated [Not Recovered/Not Resolved]

NARRATIVE: CASE EVENT DATE: 20150101
